FAERS Safety Report 5167680-7 (Version None)
Quarter: 2006Q4

REPORT INFORMATION
  Report Type: 
  Country: None (occurrence: None)
  Receive Date: 20061201
  Receipt Date: 20061201
  Transmission Date: 20070319
  Serious: Yes (Hospitalization)
  Sender: FDA-Public Use
  Company Number: None

PATIENT
  Age: 84 Year
  Sex: Female
  Weight: 61.9 kg

DRUGS (1)
  1. CIPROFLOXACIN [Suspect]
     Indication: INFECTION
     Dosage: 400 MG IVPB BID
     Route: 042
     Dates: start: 20061001, end: 20061003

REACTIONS (3)
  - LEUKOPENIA [None]
  - MONOCYTOSIS [None]
  - NEUTROPENIA [None]
